FAERS Safety Report 11781096 (Version 2)
Quarter: 2015Q4

REPORT INFORMATION
  Report Type: Spontaneous
  Country: MX (occurrence: MX)
  Receive Date: 20151126
  Receipt Date: 20151127
  Transmission Date: 20160305
  Serious: Yes (Death)
  Sender: FDA-Public Use
  Company Number: MX-SA-2015SA173455

PATIENT
  Age: 3 Month
  Sex: Male

DRUGS (1)
  1. MYOZYME [Suspect]
     Active Substance: ALGLUCOSIDASE ALFA
     Dosage: 2 VIALS
     Route: 041
     Dates: start: 20151028

REACTIONS (2)
  - Drug administration error [Unknown]
  - Mitochondrial cytopathy [Fatal]
